FAERS Safety Report 9028541 (Version 1)
Quarter: 2013Q1

REPORT INFORMATION
  Report Type: Spontaneous
  Country: FR (occurrence: FR)
  Receive Date: 20130124
  Receipt Date: 20130124
  Transmission Date: 20140127
  Serious: Yes (Death)
  Sender: FDA-Public Use
  Company Number: FR-UCBSA-076219

PATIENT
  Age: 87 Year
  Sex: Male

DRUGS (12)
  1. KEPPRA [Suspect]
     Dosage: 750 MG
     Route: 048
     Dates: start: 20121113, end: 20121120
  2. VAXIGRIP [Suspect]
     Indication: ANTIVIRAL PROPHYLAXIS
     Dosage: 1
     Route: 058
     Dates: start: 20121023, end: 20121023
  3. ATARAX [Concomitant]
  4. DIFFU-K [Concomitant]
  5. LOXAPAC [Concomitant]
  6. SEROPRAM [Concomitant]
  7. LANTUS [Concomitant]
  8. TERBUTALINE [Concomitant]
  9. IPRATROPIUM [Concomitant]
  10. DAFALGAN [Concomitant]
  11. NOVORAPID [Concomitant]
  12. INEXIUM [Concomitant]

REACTIONS (1)
  - Thrombocytopenic purpura [Fatal]
